FAERS Safety Report 12998367 (Version 1)
Quarter: 2016Q4

REPORT INFORMATION
  Report Type: Spontaneous
  Country: US (occurrence: US)
  Receive Date: 20161205
  Receipt Date: 20161205
  Transmission Date: 20170207
  Serious: Yes (Hospitalization, Other)
  Sender: FDA-Public Use
  Company Number: None

PATIENT
  Age: 74 Year
  Sex: Female
  Weight: 81.72 kg

DRUGS (10)
  1. AMLODIPINE BESYLATE. [Concomitant]
     Active Substance: AMLODIPINE BESYLATE
  2. ICAPS ARED2 [Concomitant]
  3. HA PLUS [Concomitant]
  4. HYDROXYZINE HCL [Concomitant]
     Active Substance: HYDROXYZINE HYDROCHLORIDE
  5. FOSAMAX [Suspect]
     Active Substance: ALENDRONATE SODIUM
     Indication: OSTEOPOROSIS
     Dosage: ?          QUANTITY:R [51,].;?
     Route: 048
     Dates: start: 20020706, end: 20111114
  6. IRBESART/HCT [Concomitant]
  7. BEE POLLEN [Concomitant]
     Active Substance: BEE POLLEN
  8. TURMERIC [Concomitant]
     Active Substance: TURMERIC
  9. CALCIUM CITRATE WITH D3 [Concomitant]
  10. MAGNESIUM + ZINC [Concomitant]

REACTIONS (4)
  - Jaw disorder [None]
  - Femur fracture [None]
  - Tooth extraction [None]
  - Fall [None]

NARRATIVE: CASE EVENT DATE: 20160111
